FAERS Safety Report 23954601 (Version 3)
Quarter: 2024Q2

REPORT INFORMATION
  Report Type: Report from Study
  Country: ES (occurrence: ES)
  Receive Date: 20240610
  Receipt Date: 20240615
  Transmission Date: 20240716
  Serious: Yes (Other)
  Sender: FDA-Public Use
  Company Number: ES-AEMPS-1259825

PATIENT

DRUGS (1)
  1. ADALIMUMAB [Suspect]
     Active Substance: ADALIMUMAB\ISOPROPYL ALCOHOL
     Indication: Psoriasis
     Dosage: 40 MILLIGRAM, EVERY 2 WEEKS
     Route: 058
     Dates: start: 20091110, end: 20220830

REACTIONS (2)
  - Laryngeal cancer [Recovering/Resolving]
  - Squamous cell carcinoma [Recovering/Resolving]

NARRATIVE: CASE EVENT DATE: 20220830
